FAERS Safety Report 23978464 (Version 1)
Quarter: 2024Q2

REPORT INFORMATION
  Report Type: Spontaneous
  Country: ZA (occurrence: None)
  Receive Date: 20240614
  Receipt Date: 20240614
  Transmission Date: 20240716
  Serious: Yes (Death)
  Sender: FDA-Public Use
  Company Number: 2024A137003

PATIENT
  Age: 79 Year
  Sex: Female

DRUGS (6)
  1. BUDESONIDE\FORMOTEROL FUMARATE DIHYDRATE [Suspect]
     Active Substance: BUDESONIDE\FORMOTEROL FUMARATE DIHYDRATE
     Dosage: UNKNOWN UNKNOWN
     Route: 055
  2. ACURATE [Concomitant]
  3. K-FENAK OTC [Concomitant]
  4. BIO-CIMETIDINE [Concomitant]
  5. ACETYLCYSTEINE [Concomitant]
     Active Substance: ACETYLCYSTEINE
  6. SANDOZ CO-AMOXYCLAV [Concomitant]

REACTIONS (1)
  - Chronic disease [Fatal]

NARRATIVE: CASE EVENT DATE: 20240523
